FAERS Safety Report 20207767 (Version 1)
Quarter: 2021Q4

REPORT INFORMATION
  Report Type: Spontaneous
  Country: SE (occurrence: SE)
  Receive Date: 20211220
  Receipt Date: 20211220
  Transmission Date: 20220304
  Serious: Yes (Hospitalization, Other)
  Sender: FDA-Public Use
  Company Number: None

PATIENT
  Age: 61 Year
  Sex: Female

DRUGS (1)
  1. SULFASALAZINE [Suspect]
     Active Substance: SULFASALAZINE
     Indication: Psoriatic arthropathy
     Dosage: 2000 MG, 1X/DAY
     Route: 048
     Dates: end: 202110

REACTIONS (2)
  - Febrile neutropenia [Unknown]
  - Agranulocytosis [Unknown]

NARRATIVE: CASE EVENT DATE: 20211001
